FAERS Safety Report 24399012 (Version 3)
Quarter: 2024Q4

REPORT INFORMATION
  Report Type: Spontaneous
  Country: US (occurrence: US)
  Receive Date: 20241004
  Receipt Date: 20241223
  Transmission Date: 20250115
  Serious: Yes (Other)
  Sender: PFIZER
  Company Number: US-PFIZER INC-PV202400128169

PATIENT
  Age: 65 Year
  Sex: Female

DRUGS (2)
  1. TUKYSA [Suspect]
     Active Substance: TUCATINIB
     Dosage: 2 TABLETS TWICE A DAY
  2. DEXAMETHASONE [Suspect]
     Active Substance: DEXAMETHASONE
     Dosage: UNK

REACTIONS (6)
  - Brain oedema [Unknown]
  - Blood glucose increased [Unknown]
  - Fall [Unknown]
  - Upper limb fracture [Unknown]
  - Wrist fracture [Unknown]
  - Tooth fracture [Unknown]

NARRATIVE: CASE EVENT DATE: 20231101
